FAERS Safety Report 5738569-7 (Version None)
Quarter: 2008Q2

REPORT INFORMATION
  Report Type: 
  Country: None (occurrence: None)
  Receive Date: 20080514
  Receipt Date: 20080514
  Transmission Date: 20081010
  Serious: Yes (Death)
  Sender: FDA-Public Use
  Company Number: None

PATIENT
  Age: 79 Year
  Sex: Male

DRUGS (2)
  1. DIGITEK [Suspect]
     Dosage: 1 TABLET DAILY
     Dates: start: 20080205
  2. OXYGEN [Concomitant]

REACTIONS (1)
  - OVERDOSE [None]
